FAERS Safety Report 21951293 (Version 1)
Quarter: 2023Q1

REPORT INFORMATION
  Report Type: Other
  Country: US (occurrence: None)
  Receive Date: 20230203
  Receipt Date: 20230203
  Transmission Date: 20230417
  Serious: Yes (Other)
  Sender: FDA-Public Use
  Company Number: US-ROCHE-3185665

PATIENT
  Age: 77 Year
  Sex: Male

DRUGS (1)
  1. ERIVEDGE [Suspect]
     Active Substance: VISMODEGIB
     Indication: Basal cell carcinoma
     Dosage: TAKE 1 CAPSULE BY MOUTH DAILY
     Route: 048

REACTIONS (4)
  - Skin ulcer [Unknown]
  - Arthralgia [Unknown]
  - Lung neoplasm malignant [Unknown]
  - Drug ineffective [Unknown]
